FAERS Safety Report 21836788 (Version 3)
Quarter: 2023Q1

REPORT INFORMATION
  Report Type: Spontaneous
  Country: US (occurrence: US)
  Receive Date: 20230109
  Receipt Date: 20230111
  Transmission Date: 20230418
  Serious: No
  Sender: FDA-Public Use
  Company Number: US-002147023-NVSC2023US003247

PATIENT
  Sex: Female

DRUGS (2)
  1. ALBUTEROL SULFATE [Suspect]
     Active Substance: ALBUTEROL SULFATE
     Indication: Product used for unknown indication
     Dosage: UNK
     Route: 065
  2. ALBUTEROL SULFATE [Suspect]
     Active Substance: ALBUTEROL SULFATE
     Dosage: 90 MCG/DOS
     Route: 065

REACTIONS (6)
  - Dysphagia [Unknown]
  - Dyspnoea [Unknown]
  - Insomnia [Unknown]
  - Incorrect dose administered [Unknown]
  - Device defective [Unknown]
  - Product dose omission issue [Unknown]
